FAERS Safety Report 14063267 (Version 33)
Quarter: 2020Q1

REPORT INFORMATION
  Report Type: Report from Study
  Country: US (occurrence: US)
  Receive Date: 20171009
  Receipt Date: 20200110
  Transmission Date: 20200409
  Serious: Yes (Hospitalization)
  Sender: FDA-Public Use
  Company Number: US-SA-2017SA183661

PATIENT
  Age: 45 Year
  Sex: Male
  Weight: 96.6 kg

DRUGS (29)
  1. BACLOFEN. [Concomitant]
     Active Substance: BACLOFEN
     Indication: MULTIPLE SCLEROSIS
     Dosage: 10 MG,UNK
     Route: 048
     Dates: start: 201503, end: 20170919
  2. MOMETASONE FUROATE. [Concomitant]
     Active Substance: MOMETASONE FUROATE
     Indication: SEASONAL ALLERGY
     Dosage: 50 UG,UNK
     Route: 048
     Dates: start: 2010
  3. ZYRTEC [Concomitant]
     Active Substance: CETIRIZINE HYDROCHLORIDE
     Indication: PROPHYLAXIS
     Dosage: 10 MG, UNK
     Route: 048
     Dates: start: 20170428, end: 20170505
  4. AMPYRA [Concomitant]
     Active Substance: DALFAMPRIDINE
     Indication: GAIT DISTURBANCE
  5. AMPYRA [Concomitant]
     Active Substance: DALFAMPRIDINE
     Indication: MULTIPLE SCLEROSIS
     Dosage: 10 MG,Q12H
     Route: 048
     Dates: start: 20170705
  6. VITAMIN D3 [Concomitant]
     Active Substance: CHOLECALCIFEROL
     Dosage: 5000 DF,QD
     Route: 048
  7. ALEMTUZUMAB [Suspect]
     Active Substance: ALEMTUZUMAB
     Indication: RELAPSING MULTIPLE SCLEROSIS
     Dosage: 12 MG,QD
     Route: 041
     Dates: start: 20170501, end: 20170505
  8. BACLOFEN. [Concomitant]
     Active Substance: BACLOFEN
     Dosage: 5 MG, UNK
     Route: 048
     Dates: start: 20170920
  9. MOMETASONE FUROATE. [Concomitant]
     Active Substance: MOMETASONE FUROATE
     Indication: HYPERSENSITIVITY
  10. VALIUM [Concomitant]
     Active Substance: DIAZEPAM
     Dosage: 5 MG,BID
     Route: 065
     Dates: start: 2017
  11. VALIUM [Concomitant]
     Active Substance: DIAZEPAM
     Dosage: 150 MG, UNK
     Route: 048
     Dates: start: 20170920
  12. ZYRTEC [Concomitant]
     Active Substance: CETIRIZINE HYDROCHLORIDE
     Indication: HYPERSENSITIVITY
     Dosage: 10 MG, UNK
     Route: 048
     Dates: start: 201507
  13. ACICLOVIR [Concomitant]
     Active Substance: ACYCLOVIR
     Indication: PROPHYLAXIS
     Dosage: 400 MG,BID
     Route: 048
     Dates: start: 20170428, end: 20170505
  14. PARACETAMOL [Concomitant]
     Active Substance: ACETAMINOPHEN
     Indication: PROPHYLAXIS
     Dosage: 1000 MG,UNK
     Route: 048
     Dates: start: 20170501, end: 20170505
  15. TIZANIDINE HYDROCHLORIDE. [Concomitant]
     Active Substance: TIZANIDINE HYDROCHLORIDE
     Dosage: 2 MG,UNK
     Route: 065
  16. VITAMIN A [RETINOL] [Concomitant]
     Active Substance: RETINOL
     Dosage: 10000 DF,QD
     Route: 048
  17. ZANAFLEX [Concomitant]
     Active Substance: TIZANIDINE HYDROCHLORIDE
     Indication: MULTIPLE SCLEROSIS
     Dosage: 2 MG,UNK
     Route: 048
     Dates: start: 201606
  18. HYDROXYZINE HYDROCHLORIDE. [Concomitant]
     Active Substance: HYDROXYZINE HYDROCHLORIDE
     Indication: PROPHYLAXIS
     Dosage: 50 MG,UNK
     Route: 048
     Dates: start: 20170428, end: 20170505
  19. DEPLIN [Concomitant]
     Active Substance: LEVOMEFOLATE CALCIUM
     Indication: DEPRESSION
     Dosage: 15 MG,UNK
     Route: 048
     Dates: start: 201507
  20. ZANTAC [Concomitant]
     Active Substance: RANITIDINE HYDROCHLORIDE
     Indication: PROPHYLAXIS
     Dosage: 150 MG,UNK
     Route: 048
     Dates: start: 20170428, end: 20170505
  21. FLUTICASONE PROPIONATE. [Concomitant]
     Active Substance: FLUTICASONE PROPIONATE
     Dosage: 500 UG,UNK
     Route: 065
  22. SOLU-MEDROL [Concomitant]
     Active Substance: METHYLPREDNISOLONE SODIUM SUCCINATE
     Indication: PROPHYLAXIS
     Dosage: 1000 MG,UNK
     Route: 042
     Dates: start: 20170501, end: 20170505
  23. DIAZEPAM. [Concomitant]
     Active Substance: DIAZEPAM
     Indication: MULTIPLE SCLEROSIS
     Dosage: 5 MG,UNK
     Route: 048
     Dates: start: 201503
  24. DILAUDID [Concomitant]
     Active Substance: HYDROMORPHONE HYDROCHLORIDE
     Dosage: UNK UNK,UNK
     Route: 065
  25. LEXAPRO [Concomitant]
     Active Substance: ESCITALOPRAM OXALATE
     Indication: DEPRESSION
     Dosage: 20 MG,UNK
     Route: 048
     Dates: start: 201302
  26. VALIUM [Concomitant]
     Active Substance: DIAZEPAM
     Indication: MULTIPLE SCLEROSIS
     Dosage: 5 MG,UNK
     Route: 048
     Dates: start: 201503, end: 20170919
  27. CARIMUNE [Concomitant]
     Active Substance: HUMAN IMMUNOGLOBULIN G
     Dosage: 96 G,UNK
  28. ZYRTEC [Concomitant]
     Active Substance: CETIRIZINE HYDROCHLORIDE
     Indication: SEASONAL ALLERGY
     Dosage: 10 MG, UNK
     Route: 048
     Dates: start: 201807
  29. ACICLOVIR [Concomitant]
     Active Substance: ACYCLOVIR
     Indication: MULTIPLE SCLEROSIS
     Dosage: 800 MG,UNK
     Route: 048
     Dates: start: 20170529

REACTIONS (18)
  - Bacterial infection [Recovered/Resolved]
  - White matter lesion [Not Recovered/Not Resolved]
  - Fall [Not Recovered/Not Resolved]
  - Oral herpes [Recovered/Resolved]
  - Temporomandibular joint syndrome [Not Recovered/Not Resolved]
  - Anxiety [Recovered/Resolved]
  - Fatigue [Recovered/Resolved]
  - Clonus [Recovered/Resolved]
  - Coccidioidomycosis [Not Recovered/Not Resolved]
  - Otitis externa [Recovered/Resolved]
  - Upper respiratory tract infection [Recovered/Resolved]
  - Muscle spasticity [Recovered/Resolved]
  - Rash erythematous [Recovered/Resolved]
  - Mastoiditis [Recovered/Resolved]
  - Migraine [Not Recovered/Not Resolved]
  - Rash [Recovered/Resolved]
  - Tremor [Recovered/Resolved]
  - Headache [Recovered/Resolved]

NARRATIVE: CASE EVENT DATE: 201705
